FAERS Safety Report 7013814-9 (Version None)
Quarter: 2010Q3

REPORT INFORMATION
  Report Type: 
  Country: None (occurrence: None)
  Receive Date: 20100924
  Receipt Date: 20100914
  Transmission Date: 20110219
  Serious: Yes (Other)
  Sender: FDA-Public Use
  Company Number: US-SANOFI-AVENTIS-2010SA055712

PATIENT
  Age: 71 Year
  Sex: Male
  Weight: 68 kg

DRUGS (3)
  1. PLAVIX [Suspect]
     Route: 048
     Dates: start: 20100401
  2. MICRONASE [Concomitant]
  3. COZAAR [Concomitant]

REACTIONS (6)
  - ASTHENIA [None]
  - BLOOD PRESSURE SYSTOLIC INCREASED [None]
  - ERECTILE DYSFUNCTION [None]
  - INSOMNIA [None]
  - PRODUCTIVE COUGH [None]
  - WEIGHT DECREASED [None]
